FAERS Safety Report 10257649 (Version 1)
Quarter: 2014Q2

REPORT INFORMATION
  Report Type: Spontaneous
  Country: US (occurrence: US)
  Receive Date: 20140625
  Receipt Date: 20140625
  Transmission Date: 20141212
  Serious: Yes (Other)
  Sender: FDA-Public Use
  Company Number: US-ELI_LILLY_AND_COMPANY-US201406005949

PATIENT
  Sex: Male

DRUGS (1)
  1. CYRAMZA [Suspect]
     Indication: PRODUCT USED FOR UNKNOWN INDICATION
     Route: 042

REACTIONS (5)
  - Acute pulmonary oedema [Unknown]
  - Loss of consciousness [Unknown]
  - Cough [Unknown]
  - Heart rate decreased [Unknown]
  - Off label use [Unknown]
